FAERS Safety Report 6842465-1 (Version None)
Quarter: 2010Q3

REPORT INFORMATION
  Report Type: 
  Country: None (occurrence: None)
  Receive Date: 20100709
  Receipt Date: 20100602
  Transmission Date: 20110219
  Serious: Yes (Other)
  Sender: FDA-Public Use
  Company Number: 2010-1944

PATIENT
  Age: 59 Year
  Sex: Male

DRUGS (2)
  1. SOMATULINE AUTOSOLUTION 120MG (LANREOTIDE AUTOGEL) (LANREOTIDE) (LANRE [Suspect]
     Indication: ACROMEGALY
     Dosage: (120 MG) PARENTERAL
     Route: 051
     Dates: start: 20070912
  2. BLOOD THINNERS (ALL OTHER THERAPEUTIC PRODUCTS) [Concomitant]

REACTIONS (1)
  - RENAL NEOPLASM [None]
